FAERS Safety Report 4921271-9 (Version None)
Quarter: 2006Q1

REPORT INFORMATION
  Report Type: 
  Country: None (occurrence: None)
  Receive Date: 20060224
  Receipt Date: 20060213
  Transmission Date: 20060701
  Serious: Yes (Other)
  Sender: FDA-Public Use
  Company Number: US-JNJFOC-20060104751

PATIENT
  Age: 34 Year
  Sex: Male
  Weight: 83.92 kg

DRUGS (5)
  1. EXTRA STRENGTH TYLENOL [Suspect]
     Route: 048
  2. EXTRA STRENGTH TYLENOL [Suspect]
     Indication: HEADACHE
     Dosage: 1000MG AS DIRECTED
     Route: 048
  3. PERCOCET [Concomitant]
  4. PERCOCET [Concomitant]
     Indication: PAIN MANAGEMENT
     Dosage: 10/325 3 TO 4 TIMES DAILY
  5. OXYCONTIN [Concomitant]
     Indication: PAIN MANAGEMENT

REACTIONS (11)
  - ABDOMINAL PAIN [None]
  - HEADACHE [None]
  - INAPPROPRIATE SCHEDULE OF DRUG ADMINISTRATION [None]
  - INFLUENZA [None]
  - MEDICATION TAMPERING [None]
  - NAUSEA [None]
  - PARAESTHESIA [None]
  - PHARMACEUTICAL PRODUCT COMPLAINT [None]
  - RETCHING [None]
  - STOMACH DISCOMFORT [None]
  - VOMITING [None]
